FAERS Safety Report 6122091-2 (Version None)
Quarter: 2009Q1

REPORT INFORMATION
  Report Type: 
  Country: None (occurrence: None)
  Receive Date: 20090313
  Receipt Date: 20090313
  Transmission Date: 20090719
  Serious: Yes (Life-Threatening, Hospitalization)
  Sender: FDA-Public Use
  Company Number: None

PATIENT
  Sex: Male
  Weight: 61.2356 kg

DRUGS (8)
  1. ACTONEL [Suspect]
     Indication: SENILE OSTEOPOROSIS
     Dosage: 150 MG ONCE MONTHLY ORALLY
     Route: 048
     Dates: start: 20080301, end: 20090201
  2. ATENOLOL [Concomitant]
  3. EXFORGE [Concomitant]
  4. SERTROLINE [Concomitant]
  5. TRAZODONE HCL [Concomitant]
  6. DETROL [Concomitant]
  7. VITAMINE D [Concomitant]
  8. METAMUCIL [Concomitant]

REACTIONS (10)
  - ABDOMINAL DISTENSION [None]
  - ANOREXIA [None]
  - ARRHYTHMIA [None]
  - ASTHENIA [None]
  - BLOOD PRESSURE DECREASED [None]
  - DIARRHOEA [None]
  - GASTRIC ULCER HAEMORRHAGE [None]
  - GASTROINTESTINAL INFLAMMATION [None]
  - HAEMATEMESIS [None]
  - NAUSEA [None]
